FAERS Safety Report 8512697-5 (Version None)
Quarter: 2012Q3

REPORT INFORMATION
  Report Type: 
  Country: None (occurrence: None)
  Receive Date: 20120716
  Receipt Date: 20120710
  Transmission Date: 20120928
  Serious: Yes (Hospitalization, Other)
  Sender: FDA-Public Use
  Company Number: DE-PFIZER INC-2012165829

PATIENT
  Age: 59 Year
  Sex: Male

DRUGS (3)
  1. LYRICA [Suspect]
     Dosage: 75 MG, UNK
  2. LYRICA [Suspect]
     Dosage: 300 MG, UNK
  3. MSI [Concomitant]
     Dosage: 20 MG, UNK

REACTIONS (4)
  - DRUG INTOLERANCE [None]
  - DISORIENTATION [None]
  - FALL [None]
  - CONVULSION [None]
